FAERS Safety Report 20810949 (Version 1)
Quarter: 2022Q2

REPORT INFORMATION
  Report Type: Spontaneous
  Country: US (occurrence: US)
  Receive Date: 20220510
  Receipt Date: 20220510
  Transmission Date: 20220721
  Serious: Yes (Hospitalization, Other)
  Sender: FDA-Public Use
  Company Number: US-INSUD PHARMA-2204US01681

PATIENT

DRUGS (5)
  1. ACYCLOVIR [Suspect]
     Active Substance: ACYCLOVIR
     Indication: Central nervous system infection
     Dosage: 10 MG/KG PER DOSE, EVERY 8 HOURS, TOTAL OF 2 DOSES
     Route: 042
  2. CEFTRIAXONE [Suspect]
     Active Substance: CEFTRIAXONE
     Indication: Central nervous system infection
     Dosage: 50 MG/KG PER DOSE, EVERY 12 HOURS, 5 TOTAL DOSES
     Route: 042
  3. VANCOMYCIN [Suspect]
     Active Substance: VANCOMYCIN
     Indication: Central nervous system infection
     Dosage: 20 MG/KG PER DOSE, EVERY 6 HOURS, TOTAL OF 6 DOSES
     Route: 042
  4. KETOROLAC [Suspect]
     Active Substance: KETOROLAC TROMETHAMINE
     Indication: Analgesic therapy
     Dosage: 2 DOSES
     Route: 042
  5. UNSPECIFIED INGREDIENT [Suspect]
     Active Substance: UNSPECIFIED INGREDIENT
     Indication: Computerised tomogram abdomen
     Dosage: UNKNOWN
     Route: 042

REACTIONS (1)
  - Acute kidney injury [Recovered/Resolved]
